FAERS Safety Report 18029484 (Version 1)
Quarter: 2020Q3

REPORT INFORMATION
  Report Type: Report from Study
  Country: IT (occurrence: IT)
  Receive Date: 20200715
  Receipt Date: 20200715
  Transmission Date: 20201103
  Serious: Yes (Other)
  Sender: FDA-Public Use
  Company Number: IT-SHIONOGI, INC.-2020000398

PATIENT

DRUGS (8)
  1. NORADRENALINE [Concomitant]
     Active Substance: NOREPINEPHRINE
     Indication: DRUG THERAPY
     Dosage: 0.1 MCG/KG/MIN (COUNT)
     Route: 042
     Dates: start: 20200326
  2. DEXMEDETOMIDINA [Concomitant]
     Indication: SEDATION
     Dosage: 0.1 MCG/KG/HOUR (COUNT)
     Route: 042
     Dates: start: 20200520
  3. BLINDED S?649266 [Suspect]
     Active Substance: CEFIDEROCOL
     Indication: PNEUMONIA BACTERIAL
  4. HEPARIN [Concomitant]
     Active Substance: HEPARIN SODIUM
     Indication: PROPHYLAXIS
     Dosage: 10000 IU (COUNT)
     Route: 042
     Dates: start: 20200326
  5. PROPOFOL. [Concomitant]
     Active Substance: PROPOFOL
     Indication: SEDATION
     Dosage: 40 MG/H (CONT)
     Route: 042
     Dates: start: 20200326
  6. COLISTIN [Concomitant]
     Active Substance: COLISTIN
     Indication: SEPSIS
     Dosage: 45 MU, BID
     Route: 042
     Dates: start: 20200510
  7. BLINDED S?649266 [Suspect]
     Active Substance: CEFIDEROCOL
     Indication: SEPSIS
     Dosage: 2 G, TID
     Route: 042
     Dates: start: 20200525, end: 20200527
  8. FENTANEST [Concomitant]
     Active Substance: FENTANYL CITRATE
     Indication: SEDATION
     Dosage: 0.35 MG/H (CONT)
     Route: 042
     Dates: start: 20200326

REACTIONS (2)
  - Electrocardiogram PR prolongation [Recovered/Resolved]
  - Supraventricular extrasystoles [Recovered/Resolved]

NARRATIVE: CASE EVENT DATE: 20200527
